FAERS Safety Report 8781808 (Version 6)
Quarter: 2013Q2

REPORT INFORMATION
  Report Type: Report from Study
  Country: US (occurrence: US)
  Receive Date: 20120913
  Receipt Date: 20130417
  Transmission Date: 20140414
  Serious: Yes (Death, Hospitalization)
  Sender: FDA-Public Use
  Company Number: US-SANOFI-AVENTIS-2012SA065006

PATIENT
  Age: 79 Year
  Sex: Male

DRUGS (16)
  1. CABAZITAXEL [Suspect]
     Indication: TRANSITIONAL CELL CARCINOMA
     Route: 041
     Dates: start: 20120820, end: 20120820
  2. ANTITHROMBOTIC AGENTS [Concomitant]
  3. GABAPENTIN [Concomitant]
     Route: 048
     Dates: start: 20120827, end: 20120918
  4. PLENDIL [Concomitant]
     Indication: HYPERTENSION
  5. LASIX [Concomitant]
  6. LASIX [Concomitant]
     Route: 048
     Dates: start: 20120915, end: 20120918
  7. LASIX [Concomitant]
     Route: 042
     Dates: start: 20120828, end: 20120830
  8. LASIX [Concomitant]
     Route: 042
     Dates: start: 20120902, end: 20120903
  9. LASIX [Concomitant]
     Route: 042
     Dates: start: 20120827, end: 20120827
  10. LASIX [Concomitant]
     Route: 042
     Dates: start: 20120831, end: 20120831
  11. LASIX [Concomitant]
     Route: 042
     Dates: start: 20120901, end: 20120901
  12. LASIX [Concomitant]
     Route: 042
     Dates: start: 20120904, end: 20120904
  13. LASIX [Concomitant]
     Route: 042
     Dates: start: 20120914, end: 20120914
  14. LOVENOX [Concomitant]
     Indication: PULMONARY EMBOLISM
     Dosage: FULL DOSE THERAPY
     Route: 058
     Dates: start: 20120227, end: 20120829
  15. LOVENOX [Concomitant]
     Indication: PULMONARY EMBOLISM
     Route: 058
     Dates: start: 201202, end: 20120901
  16. HYDROCHLOROTHIAZIDE [Concomitant]

REACTIONS (1)
  - Hypoxia [Fatal]
